FAERS Safety Report 12596768 (Version 2)
Quarter: 2016Q3

REPORT INFORMATION
  Report Type: Spontaneous
  Country: US (occurrence: US)
  Receive Date: 20160726
  Receipt Date: 20160727
  Transmission Date: 20161109
  Serious: No
  Sender: FDA-Public Use
  Company Number: US-PFIZER INC-2016359030

PATIENT
  Age: 51 Year
  Sex: Female
  Weight: 90.72 kg

DRUGS (10)
  1. EFFEXOR [Concomitant]
     Active Substance: VENLAFAXINE HYDROCHLORIDE
     Indication: ANXIETY
     Dosage: 37.5 MG, 1X/DAY(ONE CAPSULE BY MOUTHY ONCE A DAY)
     Route: 048
  2. ROBAXIN [Concomitant]
     Active Substance: METHOCARBAMOL
     Indication: CROHN^S DISEASE
  3. EFFEXOR [Concomitant]
     Active Substance: VENLAFAXINE HYDROCHLORIDE
     Indication: DEPRESSION
  4. KEPPRA [Concomitant]
     Active Substance: LEVETIRACETAM
     Indication: MIGRAINE
     Dosage: 500 MG, 2X/DAY(500MG ONE TABLET BY MOUTH TWICE A DAY)
     Route: 048
  5. ROBAXIN [Concomitant]
     Active Substance: METHOCARBAMOL
     Indication: RESTLESS LEGS SYNDROME
     Dosage: 1000 MG, 1X/DAY(500MG TWO TABLET BY MOUTH NIGHTLY)
     Route: 048
  6. PROPRANOLOL [Concomitant]
     Active Substance: PROPRANOLOL\PROPRANOLOL HYDROCHLORIDE
     Indication: MIGRAINE
     Dosage: 60 MG, 2X/DAY(20MG THREE TABLET BY MOUTH TWICE A DAY)
     Route: 048
  7. CARBIDOPA/LEVODOPA [Concomitant]
     Indication: RESTLESS LEGS SYNDROME
     Dosage: [CARBIDOPA 50MG]/[LEVODOPA 200MG](ONE TABLET BY MOUTH NIGHTLY)
     Route: 048
  8. LYRICA [Suspect]
     Active Substance: PREGABALIN
     Indication: FIBROMYALGIA
     Dosage: 75 MG, 2X/DAY(ONE CAPSULE BY MOUTH TWICE A DAY)
     Route: 048
     Dates: start: 20160720
  9. LUNESTA [Concomitant]
     Active Substance: ESZOPICLONE
     Indication: INSOMNIA
     Dosage: 2 MG, DAILY(2MG ONE TABLET BY MOUTH NIGHTLY)
     Route: 048
  10. MELATONIN [Concomitant]
     Active Substance: MELATONIN
     Indication: INSOMNIA
     Dosage: 5 MG, DAILY(5MG ONE TABLET BY MOUTH NIGHTLY)
     Route: 048

REACTIONS (2)
  - Lip pain [Recovering/Resolving]
  - Pharyngeal mass [Recovering/Resolving]

NARRATIVE: CASE EVENT DATE: 20160721
